FAERS Safety Report 8446874-9 (Version None)
Quarter: 2012Q2

REPORT INFORMATION
  Report Type: 
  Country: None (occurrence: None)
  Receive Date: 20120612
  Receipt Date: 20120612
  Transmission Date: 20120825
  Serious: No
  Sender: FDA-Public Use
  Company Number: None

PATIENT
  Age: 33 Year
  Sex: Female

DRUGS (1)
  1. ARANESP [Suspect]
     Indication: NEPHROGENIC ANAEMIA
     Dosage: 40 MCG QOW SQ
     Route: 058
     Dates: start: 20120522

REACTIONS (3)
  - VAGINAL HAEMORRHAGE [None]
  - FLUID RETENTION [None]
  - HYPERHIDROSIS [None]
